FAERS Safety Report 8178307 (Version 2)
Quarter: 2012Q4

REPORT INFORMATION
  Report Type: 
  Country: US (occurrence: US)
  Receive Date: 20111013
  Receipt Date: 20121105
  Transmission Date: 20130627
  Serious: Yes (Hospitalization, Other)
  Sender: FDA-Public Use
  Company Number: US-BIOGENIDEC-2011BI037638

PATIENT
  Age: 45 Year
  Sex: Female

DRUGS (2)
  1. AVONEX [Suspect]
     Indication: MULTIPLE SCLEROSIS
     Route: 030
     Dates: start: 20040831, end: 20071003
  2. AVONEX [Suspect]
     Indication: MULTIPLE SCLEROSIS
     Route: 030
     Dates: start: 20110816, end: 20110831

REACTIONS (12)
  - Myocardial infarction [Recovered/Resolved]
  - Coma [Recovered/Resolved]
  - Brain injury [Recovered/Resolved]
  - Respiratory arrest [Recovered/Resolved]
  - Pneumonia [Recovered/Resolved]
  - Liver injury [Recovered/Resolved]
  - Renal failure [Recovered/Resolved]
  - Hepatic failure [Recovered/Resolved]
  - Grand mal convulsion [Recovered/Resolved]
  - Hepatitis [Recovered/Resolved]
  - Convulsion [Recovered/Resolved]
  - Amnesia [Not Recovered/Not Resolved]
